FAERS Safety Report 6304960-3 (Version None)
Quarter: 2009Q3

REPORT INFORMATION
  Report Type: 
  Country: None (occurrence: None)
  Receive Date: 20090806
  Receipt Date: 20090727
  Transmission Date: 20100115
  Serious: No
  Sender: FDA-Public Use
  Company Number: 2009009008

PATIENT
  Sex: Female

DRUGS (1)
  1. FENTORA [Suspect]
     Indication: MYELITIS TRANSVERSE
     Dosage: 400 MCG, BU
     Route: 002
     Dates: start: 20060801

REACTIONS (1)
  - DRUG PRESCRIBING ERROR [None]
